FAERS Safety Report 21301744 (Version 1)
Quarter: 2022Q3

REPORT INFORMATION
  Report Type: Spontaneous
  Country: US (occurrence: None)
  Receive Date: 20220906
  Receipt Date: 20220906
  Transmission Date: 20221026
  Serious: Yes (Hospitalization)
  Sender: FDA-Public Use
  Company Number: None

PATIENT
  Age: 51 Year
  Sex: Male

DRUGS (1)
  1. WARFARIN [Suspect]
     Active Substance: WARFARIN
     Indication: Cerebrovascular accident
     Dosage: FREQUENCY : DAILY;?
     Route: 048
     Dates: start: 20170519

REACTIONS (7)
  - Epistaxis [None]
  - Melaena [None]
  - International normalised ratio increased [None]
  - Anticoagulation drug level below therapeutic [None]
  - Haemorrhage [None]
  - Gastric haemorrhage [None]
  - Haemoglobin decreased [None]

NARRATIVE: CASE EVENT DATE: 20220806
